FAERS Safety Report 20948789 (Version 1)
Quarter: 2022Q2

REPORT INFORMATION
  Report Type: Spontaneous
  Country: IR (occurrence: IR)
  Receive Date: 20220612
  Receipt Date: 20220612
  Transmission Date: 20220720
  Serious: Yes (Death, Life-Threatening, Hospitalization, Other)
  Sender: FDA-Public Use
  Company Number: IR-LUPIN PHARMACEUTICALS INC.-2022-08404

PATIENT
  Age: 8 Year
  Sex: Male

DRUGS (7)
  1. VORICONAZOLE [Suspect]
     Active Substance: VORICONAZOLE
     Indication: Aspergillus infection
     Dosage: UNK, WITH AMPHOTERICIN B
     Route: 065
  2. VORICONAZOLE [Suspect]
     Active Substance: VORICONAZOLE
     Dosage: 100 MG, BID
     Route: 065
  3. INTERFERON GAMMA [Suspect]
     Active Substance: INTERFERON GAMMA
     Indication: Aspergillus infection
     Dosage: UNK, 1-2 DOSES EVERY SECOND DAY
     Route: 058
  4. ITRACONAZOLE [Suspect]
     Active Substance: ITRACONAZOLE
     Indication: Aspergillus infection
     Dosage: UNK
     Route: 065
  5. AMPHOTERICIN B [Suspect]
     Active Substance: AMPHOTERICIN B
     Indication: Aspergillus infection
     Dosage: UNK
     Route: 065
  6. COTRIMOXAZOLE [Concomitant]
     Active Substance: SULFAMETHOXAZOLE\TRIMETHOPRIM
     Indication: Prophylaxis
     Dosage: UNK, 5MG TRIMETHOPRIM PER KILOGRAM OF BODY WEIGHT PER DAY
     Route: 065
  7. OFLOXACIN [Concomitant]
     Active Substance: OFLOXACIN
     Indication: Prophylaxis
     Dosage: 200 MG, THREE TIMES A WEEK
     Route: 065

REACTIONS (4)
  - Drug ineffective [Fatal]
  - Cerebral venous sinus thrombosis [Fatal]
  - Cerebral haemorrhage [Fatal]
  - Intracranial pressure increased [Fatal]
